FAERS Safety Report 6307009-1 (Version None)
Quarter: 2009Q3

REPORT INFORMATION
  Report Type: 
  Country: None (occurrence: None)
  Receive Date: 20090812
  Receipt Date: 20090807
  Transmission Date: 20100115
  Serious: Yes (Life-Threatening)
  Sender: FDA-Public Use
  Company Number: US-CELGENEUS-163-21880-09071413

PATIENT
  Sex: Male

DRUGS (3)
  1. REVLIMID [Suspect]
     Indication: MULTIPLE MYELOMA
     Route: 048
     Dates: start: 20090721
  2. REVLIMID [Suspect]
     Dosage: 25MG, 15MG
     Route: 048
     Dates: start: 20090201, end: 20090501
  3. REVLIMID [Suspect]
     Route: 048
     Dates: start: 20061101, end: 20070201

REACTIONS (1)
  - DISEASE PROGRESSION [None]
